APPROVED DRUG PRODUCT: SURMONTIL
Active Ingredient: TRIMIPRAMINE MALEATE
Strength: EQ 50MG BASE **Federal Register determination that product was not discontinued or withdrawn for safety or effectiveness reasons**
Dosage Form/Route: CAPSULE;ORAL
Application: N016792 | Product #002
Applicant: TEVA WOMENS HEALTH INC
Approved: Approved Prior to Jan 1, 1982 | RLD: Yes | RS: No | Type: DISCN